FAERS Safety Report 19737724 (Version 1)
Quarter: 2021Q3

REPORT INFORMATION
  Report Type: Spontaneous
  Country: AT (occurrence: AT)
  Receive Date: 20210824
  Receipt Date: 20210824
  Transmission Date: 20211014
  Serious: Yes (Hospitalization)
  Sender: FDA-Public Use
  Company Number: AT-PFIZER INC-202101033900

PATIENT
  Sex: Male

DRUGS (12)
  1. THROMBO ASS [Concomitant]
     Active Substance: ASPIRIN
     Dosage: UNK UNK, QD
  2. PANTOPRAZOLE [Suspect]
     Active Substance: PANTOPRAZOLE
     Dosage: UNK
     Route: 065
  3. ANAEROBEX [Concomitant]
     Active Substance: METRONIDAZOLE
     Dosage: UNK UNK, QD
  4. AMOXICILLIN. [Suspect]
     Active Substance: AMOXICILLIN
     Indication: HELICOBACTER GASTRITIS
     Dosage: UNK UNK, QD
     Route: 065
  5. TRIGELAN [Concomitant]
     Dosage: UNK UNK, QD
  6. TRIGELAN [Concomitant]
     Dosage: UNK UNK, BID
  7. XANOR [Concomitant]
     Active Substance: ALPRAZOLAM
     Indication: RESTLESSNESS
     Dosage: UNK
  8. CLARITHROMYCIN. [Suspect]
     Active Substance: CLARITHROMYCIN
     Indication: HELICOBACTER GASTRITIS
     Dosage: UNK UNK, QD
     Route: 065
  9. PANTOPRAZOLE [Suspect]
     Active Substance: PANTOPRAZOLE
     Indication: HELICOBACTER GASTRITIS
     Dosage: UNK UNK, QD
     Route: 065
  10. TRITTICO [Concomitant]
     Active Substance: TRAZODONE HYDROCHLORIDE
     Dosage: UNK UNK, QD
  11. DETRUSITOL [Concomitant]
     Active Substance: TOLTERODINE TARTRATE
     Dosage: UNK UNK, QD
  12. CITALOPRAM [Suspect]
     Active Substance: CITALOPRAM HYDROBROMIDE
     Indication: BARRETT^S OESOPHAGUS
     Dosage: UNK UNK, QD
     Route: 065

REACTIONS (5)
  - Confusional state [Recovering/Resolving]
  - General physical health deterioration [Recovering/Resolving]
  - Nausea [Recovering/Resolving]
  - Diarrhoea [Recovering/Resolving]
  - Disorientation [Recovering/Resolving]
